FAERS Safety Report 6822250-7 (Version None)
Quarter: 2010Q3

REPORT INFORMATION
  Report Type: 
  Country: None (occurrence: None)
  Receive Date: 20100707
  Receipt Date: 20100707
  Transmission Date: 20110219
  Serious: No
  Sender: FDA-Public Use
  Company Number: None

PATIENT

DRUGS (1)
  1. ZYCLARA [Suspect]

REACTIONS (14)
  - APHTHOUS STOMATITIS [None]
  - BACK PAIN [None]
  - DIZZINESS [None]
  - EAR PAIN [None]
  - FATIGUE [None]
  - INSOMNIA [None]
  - LYMPHADENOPATHY [None]
  - MIDDLE EAR EFFUSION [None]
  - OEDEMA MOUTH [None]
  - ORAL PAIN [None]
  - PHOTOPSIA [None]
  - SINUS HEADACHE [None]
  - STOMATITIS [None]
  - VISUAL IMPAIRMENT [None]
